FAERS Safety Report 13310615 (Version 3)
Quarter: 2020Q1

REPORT INFORMATION
  Report Type: Spontaneous
  Country: US (occurrence: US)
  Receive Date: 20170309
  Receipt Date: 20200227
  Transmission Date: 20200409
  Serious: No
  Sender: FDA-Public Use
  Company Number: US-JNJFOC-20161009477

PATIENT
  Age: 16 Year
  Sex: Male

DRUGS (9)
  1. RISPERDAL [Suspect]
     Active Substance: RISPERIDONE
     Route: 048
     Dates: start: 20050203
  2. RISPERDAL [Suspect]
     Active Substance: RISPERIDONE
     Route: 048
     Dates: start: 20050916, end: 20070214
  3. RISPERDAL [Suspect]
     Active Substance: RISPERIDONE
     Route: 048
     Dates: start: 20070312
  4. RISPERDAL [Suspect]
     Active Substance: RISPERIDONE
     Route: 048
     Dates: start: 20050308, end: 20050519
  5. RISPERDAL [Suspect]
     Active Substance: RISPERIDONE
     Indication: INTELLECTUAL DISABILITY
     Route: 048
     Dates: start: 20041013, end: 20041108
  6. RISPERDAL [Suspect]
     Active Substance: RISPERIDONE
     Indication: BEHAVIOUR DISORDER
     Route: 048
     Dates: start: 20040223, end: 20040817
  7. INVEGA [Suspect]
     Active Substance: PALIPERIDONE
     Indication: BEHAVIOUR DISORDER
     Route: 048
     Dates: start: 20070417, end: 20140605
  8. INVEGA [Suspect]
     Active Substance: PALIPERIDONE
     Indication: INTELLECTUAL DISABILITY
  9. RISPERDAL [Suspect]
     Active Substance: RISPERIDONE
     Dosage: VARIABLE DOSES 1 MG AND 2 MG
     Route: 048
     Dates: start: 20070312

REACTIONS (6)
  - Weight increased [Unknown]
  - Emotional distress [Unknown]
  - Therapy cessation [Unknown]
  - Off label use [Unknown]
  - Gynaecomastia [Unknown]
  - Product use in unapproved indication [Unknown]

NARRATIVE: CASE EVENT DATE: 20040223
